FAERS Safety Report 20992016 (Version 1)
Quarter: 2022Q2

REPORT INFORMATION
  Report Type: Spontaneous
  Country: GB (occurrence: GB)
  Receive Date: 20220622
  Receipt Date: 20220622
  Transmission Date: 20220720
  Serious: Yes (Other)
  Sender: FDA-Public Use
  Company Number: GB-SUN PHARMACEUTICAL INDUSTRIES LTD-2022RR-341542

PATIENT
  Sex: Female
  Weight: 2.3 kg

DRUGS (3)
  1. BISOPROLOL [Suspect]
     Active Substance: BISOPROLOL
     Indication: Sinus tachycardia
     Dosage: 2.5 MILLIGRAM, UNK
     Route: 064
  2. FUROSEMIDE [Suspect]
     Active Substance: FUROSEMIDE
     Dosage: 20 MILLIGRAM, UNK
     Route: 064
  3. DIAMORPHINE [Suspect]
     Active Substance: DIAMORPHINE
     Indication: Sinus tachycardia
     Dosage: 5 MILLIGRAM, UNK
     Route: 064

REACTIONS (2)
  - Premature baby [Unknown]
  - Foetal exposure during pregnancy [Unknown]
